FAERS Safety Report 8854859 (Version 3)
Quarter: 2014Q2

REPORT INFORMATION
  Report Type: Spontaneous
  Country: US (occurrence: US)
  Receive Date: 20121023
  Receipt Date: 20131018
  Transmission Date: 20141212
  Serious: Yes (Other)
  Sender: FDA-Public Use
  Company Number: US-PFIZER INC-2012260949

PATIENT
  Sex: 0

DRUGS (2)
  1. AVINZA [Suspect]
     Dosage: 90 MG, UNK
     Dates: end: 201208
  2. DURAGESIC [Suspect]
     Dosage: UNK

REACTIONS (4)
  - Oesophageal ulcer [Unknown]
  - Abdominal distension [Unknown]
  - Alopecia [Unknown]
  - Visual impairment [Unknown]
